FAERS Safety Report 4715219-X (Version None)
Quarter: 2005Q3

REPORT INFORMATION
  Report Type: 
  Country: None (occurrence: None)
  Receive Date: 20050715
  Receipt Date: 20050316
  Transmission Date: 20060218
  Serious: Yes (Other)
  Sender: FDA-Public Use
  Company Number: JP-ROCHE-399572

PATIENT
  Age: 88 Year
  Sex: Female

DRUGS (11)
  1. TAMIFLU [Suspect]
     Route: 048
     Dates: start: 20050307, end: 20050313
  2. CALONAL [Concomitant]
     Route: 048
     Dates: start: 20050307, end: 20050313
  3. NORVASC [Concomitant]
     Route: 048
  4. DIGOXIN [Concomitant]
     Dosage: DRUG NAME ^HALFDIGOXIN^
     Route: 048
  5. ZANTAC [Concomitant]
     Route: 048
  6. THYRADIN S [Concomitant]
     Route: 048
  7. TINELAC [Concomitant]
     Route: 048
  8. GASMOTIN [Concomitant]
     Route: 048
  9. BERIZYM [Concomitant]
     Route: 048
  10. MAGNESIUM OXIDE [Concomitant]
     Route: 048
  11. NOVOLIN [Concomitant]
     Dosage: DOSE REPORTED AS 22UT DRUG NAME ^NOVOLIN 50R^
     Route: 058

REACTIONS (3)
  - DISSEMINATED INTRAVASCULAR COAGULATION [None]
  - MYELODYSPLASTIC SYNDROME [None]
  - PANCYTOPENIA [None]
